FAERS Safety Report 5170112-6 (Version None)
Quarter: 2006Q4

REPORT INFORMATION
  Report Type: 
  Country: None (occurrence: None)
  Receive Date: 20061201
  Receipt Date: 20061122
  Transmission Date: 20070319
  Serious: Yes (Death, Hospitalization)
  Sender: FDA-Public Use
  Company Number: 2006BH014741

PATIENT
  Age: 66 Year
  Sex: Female
  Weight: 77.5 kg

DRUGS (2)
  1. DIANEAL [Suspect]
     Indication: PERITONEAL DIALYSIS
     Dosage: 6 L; UNK IP
     Route: 033
     Dates: end: 20061006
  2. DIANEAL [Suspect]
     Indication: PERITONEAL DIALYSIS
     Dosage: 2 L; UNK; IP
     Route: 033
     Dates: end: 20061006

REACTIONS (1)
  - SEPSIS [None]
